FAERS Safety Report 23446384 (Version 1)
Quarter: 2024Q1

REPORT INFORMATION
  Report Type: Spontaneous
  Country: US (occurrence: None)
  Receive Date: 20240125
  Receipt Date: 20240125
  Transmission Date: 20240410
  Serious: Yes (Death)
  Sender: FDA-Public Use
  Company Number: None

PATIENT
  Age: 66 Year
  Sex: Male
  Weight: 67.5 kg

DRUGS (14)
  1. BREYANZI [Suspect]
     Active Substance: LISOCABTAGENE MARALEUCEL
     Indication: Diffuse large B-cell lymphoma
     Dosage: OTHER ROUTE : INFUSION;?
     Route: 050
     Dates: start: 20220927
  2. ACYCLOVIR [Concomitant]
     Active Substance: ACYCLOVIR
  3. ATOVAQUONE [Concomitant]
     Active Substance: ATOVAQUONE
  4. Ergocalclferol [Concomitant]
  5. Losaratin [Concomitant]
  6. METOPROLOL SUCCINATE [Concomitant]
  7. DIALYVITE [Concomitant]
     Active Substance: ASCORBIC ACID\BIOTIN\CALCIUM PANTOTHENATE\COBALAMIN\FOLIC ACID\NIACINAMIDE\PYRIDOXINE HYDROCHLORIDE\
  8. POSACONAZOLE [Concomitant]
     Active Substance: POSACONAZOLE
  9. PREDNISONE [Concomitant]
     Active Substance: PREDNISONE
  10. PROMACTA [Concomitant]
     Active Substance: ELTROMBOPAG OLAMINE
  11. SENSIPAR [Concomitant]
     Active Substance: CINACALCET HYDROCHLORIDE
  12. TORSEMIDE [Concomitant]
     Active Substance: TORSEMIDE
  13. MELATONIN [Concomitant]
     Active Substance: MELATONIN
  14. FAMOTIDINE [Concomitant]
     Active Substance: FAMOTIDINE

REACTIONS (6)
  - Cytokine release syndrome [None]
  - Neurotoxicity [None]
  - Infection [None]
  - Renal failure [None]
  - Cardiac failure congestive [None]
  - Dialysis [None]

NARRATIVE: CASE EVENT DATE: 20220927
